FAERS Safety Report 7237325-0 (Version None)
Quarter: 2011Q1

REPORT INFORMATION
  Report Type: 
  Country: None (occurrence: None)
  Receive Date: 20110121
  Receipt Date: 20110113
  Transmission Date: 20110831
  Serious: Yes (Hospitalization, Other)
  Sender: FDA-Public Use
  Company Number: US-ASTRAZENECA-2008UW00797

PATIENT
  Age: 42 Year
  Sex: Male
  Weight: 108.9 kg

DRUGS (33)
  1. SEROQUEL [Suspect]
     Indication: SCHIZOPHRENIA, PARANOID TYPE
     Dosage: 25 MG, 100 MG, 200 MG
     Route: 048
     Dates: start: 19991021, end: 20061109
  2. RISPERDAL [Concomitant]
     Dates: start: 20010101
  3. ZYPREXA [Concomitant]
     Dosage: 1999, 2007, 2008
  4. CYMBALTA [Concomitant]
     Dates: start: 20040101, end: 20080101
  5. AMBIEN [Concomitant]
     Route: 048
     Dates: start: 20021201
  6. SEROQUEL [Suspect]
     Indication: SLEEP DISORDER
     Dosage: 25 MG, 100 MG, 200 MG
     Route: 048
     Dates: start: 19991021, end: 20061109
  7. SEROQUEL [Suspect]
     Route: 048
     Dates: start: 19991001
  8. ZYPREXA [Concomitant]
     Dosage: 1999, 2007, 2008
  9. SEROQUEL [Suspect]
     Route: 048
     Dates: start: 20030127
  10. ABILIFY [Concomitant]
     Route: 048
     Dates: start: 20040113
  11. GEODON [Concomitant]
     Dates: start: 20020101
  12. CLONAZEPAM [Concomitant]
     Dates: start: 20040101, end: 20080101
  13. TEMAZEPAM [Concomitant]
     Route: 048
     Dates: start: 20040113
  14. NAPROXEN [Concomitant]
     Dates: start: 20030127
  15. SEROQUEL [Suspect]
     Route: 048
     Dates: start: 20030127
  16. ABILIFY [Concomitant]
     Dosage: 15 MG AND 20 MG
     Dates: start: 20030101, end: 20050101
  17. PROPOX [Concomitant]
     Route: 048
     Dates: start: 20030901
  18. ULTRACET [Concomitant]
     Dosage: PRN
     Dates: start: 20030127
  19. SEROQUEL [Suspect]
     Route: 048
     Dates: start: 19991001
  20. TRILAFON [Concomitant]
  21. HALDOL [Concomitant]
     Dates: start: 20020101
  22. HALOPERIDOL [Concomitant]
     Route: 048
     Dates: start: 19991001
  23. FAMOTIDINE [Concomitant]
     Dates: start: 20030127
  24. LIPITOR [Concomitant]
     Dates: start: 20030127
  25. SEROQUEL [Suspect]
     Route: 048
     Dates: start: 19991001
  26. SEROQUEL [Suspect]
     Route: 048
     Dates: start: 20030127
  27. CLOZARIL [Concomitant]
     Dates: start: 19990101
  28. NEURONTIN [Concomitant]
     Route: 048
     Dates: start: 20040113
  29. SEROQUEL [Suspect]
     Indication: DEPRESSION
     Dosage: 25 MG, 100 MG, 200 MG
     Route: 048
     Dates: start: 19991021, end: 20061109
  30. THORAZINE [Concomitant]
     Dates: start: 20070101
  31. BENZTROPINE MESYLATE [Concomitant]
     Route: 048
     Dates: start: 19991001
  32. DEPAKOTE ER [Concomitant]
     Dates: start: 20030127
  33. SKELAXIN [Concomitant]
     Dates: start: 20030127

REACTIONS (9)
  - DIABETES MELLITUS [None]
  - HYPERGLYCAEMIA [None]
  - HYPERTENSION [None]
  - GASTROOESOPHAGEAL REFLUX DISEASE [None]
  - BLOOD PRESSURE ABNORMAL [None]
  - NEUROPATHY PERIPHERAL [None]
  - ASTHENIA [None]
  - GLYCOSURIA [None]
  - TYPE 2 DIABETES MELLITUS [None]
